FAERS Safety Report 5746600-8 (Version None)
Quarter: 2008Q2

REPORT INFORMATION
  Report Type: 
  Country: None (occurrence: None)
  Receive Date: 20080520
  Receipt Date: 20080508
  Transmission Date: 20081010
  Serious: Yes (Death, Hospitalization)
  Sender: FDA-Public Use
  Company Number: 2008US001307

PATIENT
  Age: 12 Year
  Sex: Female

DRUGS (3)
  1. PROGRAF [Suspect]
     Indication: HEART TRANSPLANT
     Dosage: ORAL; 10 MG, UID/QD, ORAL
     Route: 046
     Dates: start: 20080101
  2. MYCOPHENOLATE MOFETIL [Concomitant]
  3. CORTICOSTEROIDS [Concomitant]

REACTIONS (3)
  - ARTERIAL INJURY [None]
  - HAEMORRHAGE [None]
  - RENAL FAILURE ACUTE [None]
